FAERS Safety Report 6982902-5 (Version None)
Quarter: 2010Q3

REPORT INFORMATION
  Report Type: 
  Country: None (occurrence: None)
  Receive Date: 20100914
  Receipt Date: 20100419
  Transmission Date: 20110219
  Serious: Yes (Other)
  Sender: FDA-Public Use
  Company Number: US-PFIZER INC-2010049931

PATIENT
  Sex: Male
  Weight: 95.238 kg

DRUGS (4)
  1. LYRICA [Suspect]
     Indication: SCIATICA
     Dosage: 300 MG, 2X/DAY
     Route: 048
     Dates: start: 20090301
  2. CRESTOR [Concomitant]
     Dosage: UNK
  3. ACETYLSALICYLIC ACID [Concomitant]
     Dosage: UNK
  4. CO-Q-10 [Concomitant]
     Dosage: UNK

REACTIONS (1)
  - WEIGHT INCREASED [None]
